FAERS Safety Report 5158486-3 (Version None)
Quarter: 2006Q4

REPORT INFORMATION
  Report Type: 
  Country: None (occurrence: None)
  Receive Date: 20061116
  Receipt Date: 20061103
  Transmission Date: 20070319
  Serious: Yes (Death)
  Sender: FDA-Public Use
  Company Number: 2006132286

PATIENT
  Age: 43 Year
  Sex: Male

DRUGS (2)
  1. UNISOM [Suspect]
     Indication: INSOMNIA
     Dosage: (50 MG), ORAL
     Route: 048
     Dates: end: 20050808
  2. METHADONE HCL [Concomitant]

REACTIONS (12)
  - ARRHYTHMIA [None]
  - CARDIAC ARREST [None]
  - CONVULSION [None]
  - DELIRIUM [None]
  - DEPRESSED LEVEL OF CONSCIOUSNESS [None]
  - DRUG TOXICITY [None]
  - HALLUCINATION [None]
  - MALAISE [None]
  - PARANOIA [None]
  - RESPIRATORY ARREST [None]
  - TACHYPNOEA [None]
  - VENTRICULAR FAILURE [None]
